FAERS Safety Report 21384340 (Version 1)
Quarter: 2022Q3

REPORT INFORMATION
  Report Type: Spontaneous
  Country: US (occurrence: US)
  Receive Date: 20220928
  Receipt Date: 20220928
  Transmission Date: 20221026
  Serious: Yes (Other)
  Sender: FDA-Public Use
  Company Number: US-ORGANON-O2209USA002089

PATIENT
  Age: 28 Year
  Sex: Female
  Weight: 72.562 kg

DRUGS (1)
  1. NEXPLANON [Suspect]
     Active Substance: ETONOGESTREL
     Indication: Contraception
     Dosage: 1 IMPLANT IN LEFT ARM
     Route: 059
     Dates: start: 201706

REACTIONS (10)
  - Abortion spontaneous [Unknown]
  - Abortion spontaneous [Unknown]
  - Hypothyroidism [Unknown]
  - Pregnancy with implant contraceptive [Recovered/Resolved]
  - Pregnancy with implant contraceptive [Recovered/Resolved]
  - Heavy menstrual bleeding [Unknown]
  - Unintended pregnancy [Recovered/Resolved]
  - Unintended pregnancy [Recovered/Resolved]
  - Complication associated with device [Unknown]
  - Incorrect product administration duration [Unknown]

NARRATIVE: CASE EVENT DATE: 20200601
